FAERS Safety Report 7026079-9 (Version None)
Quarter: 2010Q4

REPORT INFORMATION
  Report Type: 
  Country: None (occurrence: None)
  Receive Date: 20101004
  Receipt Date: 20100924
  Transmission Date: 20110411
  Serious: No
  Sender: FDA-Public Use
  Company Number: US-BIOGENIDEC-2010BI033728

PATIENT
  Age: 44 Year
  Sex: Female

DRUGS (3)
  1. TYSABRI [Suspect]
     Indication: MULTIPLE SCLEROSIS
     Route: 042
     Dates: start: 20060830, end: 20071212
  2. TYSABRI [Suspect]
     Route: 042
     Dates: start: 20080818, end: 20081013
  3. TYSABRI [Suspect]
     Route: 042
     Dates: start: 20090609

REACTIONS (2)
  - DIZZINESS [None]
  - FATIGUE [None]
